FAERS Safety Report 17026004 (Version 1)
Quarter: 2019Q4

REPORT INFORMATION
  Report Type: Spontaneous
  Country: US (occurrence: US)
  Receive Date: 20191113
  Receipt Date: 20191113
  Transmission Date: 20200122
  Serious: No
  Sender: FDA-Public Use
  Company Number: US-PFIZER INC-2019487661

PATIENT
  Age: 75 Year
  Sex: Male
  Weight: 90.72 kg

DRUGS (3)
  1. INLYTA [Suspect]
     Active Substance: AXITINIB
     Dosage: 5 MG, 1X/DAY
     Route: 048
  2. INLYTA [Suspect]
     Active Substance: AXITINIB
     Indication: BONE CANCER
     Dosage: 5 MG, 2X/DAY
     Route: 048
  3. KEYTRUDA [Suspect]
     Active Substance: PEMBROLIZUMAB
     Indication: BONE CANCER
     Dosage: UNK (EVERY 3 WEEKS)

REACTIONS (5)
  - Confusional state [Unknown]
  - Off label use [Unknown]
  - Diarrhoea [Recovered/Resolved]
  - Product use in unapproved indication [Unknown]
  - Fatigue [Unknown]
